FAERS Safety Report 13537142 (Version 1)
Quarter: 2017Q2

REPORT INFORMATION
  Report Type: Spontaneous
  Country: US (occurrence: US)
  Receive Date: 20170511
  Receipt Date: 20170511
  Transmission Date: 20170830
  Serious: Yes (Death, Life-Threatening, Other)
  Sender: FDA-Public Use
  Company Number: US-RECKITT BENCKISER HEALTHCARE INT LIMITED-RB-85548-2017

PATIENT
  Age: 55 Year
  Sex: Male

DRUGS (3)
  1. SUCCINYLCHOLINE [Concomitant]
     Active Substance: SUCCINYLCHOLINE
     Indication: ANAESTHESIA
     Dosage: UNK
     Route: 065
  2. UNSPECIFIED LIDOCAINE HYDROCHLORIDE [Suspect]
     Active Substance: LIDOCAINE HYDROCHLORIDE
     Indication: ANAESTHESIA
     Dosage: ENDOBRONCHIAL
     Route: 061
  3. ETOMIDATE. [Concomitant]
     Active Substance: ETOMIDATE
     Indication: ANAESTHESIA
     Dosage: UNK
     Route: 065

REACTIONS (3)
  - Methaemoglobinaemia [Recovered/Resolved]
  - Sepsis [Fatal]
  - Condition aggravated [Recovered/Resolved]
